FAERS Safety Report 7292428-X (Version None)
Quarter: 2011Q1

REPORT INFORMATION
  Report Type: 
  Country: None (occurrence: None)
  Receive Date: 20110215
  Receipt Date: 20110209
  Transmission Date: 20110831
  Serious: Yes (Other)
  Sender: FDA-Public Use
  Company Number: US-PFIZER INC-2011029568

PATIENT
  Sex: Male

DRUGS (2)
  1. PREMARIN [Suspect]
     Indication: PRURITUS
     Dosage: UNK
  2. PREMARIN [Suspect]
     Indication: OFF LABEL USE

REACTIONS (3)
  - THROMBOSIS [None]
  - BREAST PAIN [None]
  - BREAST DISCOMFORT [None]
